FAERS Safety Report 11222323 (Version 2)
Quarter: 2015Q2

REPORT INFORMATION
  Report Type: Spontaneous
  Country: FI (occurrence: FI)
  Receive Date: 20150626
  Receipt Date: 20150630
  Transmission Date: 20150821
  Serious: Yes (Death)
  Sender: FDA-Public Use
  Company Number: FI-BAYER-2015-358356

PATIENT
  Age: 63 Year
  Sex: Male

DRUGS (26)
  1. OXYNORM [Concomitant]
     Active Substance: OXYCODONE HYDROCHLORIDE
     Indication: PAIN
     Dosage: 10 MG CAPS 1 X 1-6 X DAILY
  2. TARGIN [Concomitant]
     Active Substance: NALOXONE HYDROCHLORIDE\OXYCODONE HYDROCHLORIDE
     Dosage: 15 MG, BID
  3. LEVEMIR [Concomitant]
     Active Substance: INSULIN DETEMIR
     Dosage: 6 + 2 IU, QD
     Route: 058
  4. NOVORAPID [Concomitant]
     Active Substance: INSULIN ASPART
     Dosage: 2 IU IF BLOOD GLUCOSE OVER 12
  5. KALISOL [Concomitant]
     Dosage: 1000 MG, QD
     Route: 048
  6. CIPROXIN [Concomitant]
     Active Substance: CIPROFLOXACIN
     Dosage: 500 MG, BID
     Route: 048
  7. SOMAC [Concomitant]
     Active Substance: PANTOPRAZOLE SODIUM
     Dosage: 40 MG, QD
     Route: 048
  8. LEVEMIR [Concomitant]
     Active Substance: INSULIN DETEMIR
     Dosage: 11 IU + 7 IU, QD
     Route: 058
  9. NOVORAPID [Concomitant]
     Active Substance: INSULIN ASPART
     Dosage: 4 IU IF BLOOD GLUCOSE OVER 16
  10. ZOPINOX [Concomitant]
     Active Substance: ZOPICLONE
     Dosage: 15 MG, QD
     Route: 048
  11. OMNIC [Concomitant]
     Active Substance: TAMSULOSIN HYDROCHLORIDE
     Dosage: 0.4 MG, QD
     Route: 048
  12. LEVOLAC [Concomitant]
     Active Substance: LACTULOSE
     Dosage: 30 ML, TID
  13. DILTIAZEM [Concomitant]
     Active Substance: DILTIAZEM
     Dosage: 2-3X DAILY
  14. KLEXANE [ENOXAPARIN SODIUM] [Concomitant]
     Indication: THROMBOSIS
     Dosage: 40 MG, QD
     Route: 058
  15. OXYNORM [Concomitant]
     Active Substance: OXYCODONE HYDROCHLORIDE
     Indication: PAIN
     Dosage: 5 MG, PRN (MAX 15 MG/DAY)
     Route: 048
  16. PAMOL [Concomitant]
     Active Substance: ACETAMINOPHEN
     Dosage: 500 MG, PRN (MAX 3 TAB/DAILY)
     Route: 048
  17. INSULIN [Concomitant]
     Active Substance: INSULIN NOS
  18. NOVORAPID [Concomitant]
     Active Substance: INSULIN ASPART
     Dosage: WITH MEALS ACCORDING TO BLOOD GLUCOSE LEVEL
     Route: 058
  19. NOVORAPID [Concomitant]
     Active Substance: INSULIN ASPART
     Dosage: 6 IU IF BLOOD GLUCOSE OVER 20
  20. FURESIS [Concomitant]
     Active Substance: FUROSEMIDE
     Indication: HEPATIC FAILURE
     Dosage: 40 MG, QD
  21. OPAMOX [Concomitant]
     Dosage: 0.5X2
  22. SPIRONOLACTONE. [Concomitant]
     Active Substance: SPIRONOLACTONE
     Indication: HEPATIC FAILURE
     Dosage: 25 MG, QD
  23. OXYCONTIN [Concomitant]
     Active Substance: OXYCODONE HYDROCHLORIDE
     Dosage: 20 MG, BID
     Route: 048
  24. IMOCUR [LOPERAMIDE HYDROCHLORIDE] [Concomitant]
     Dosage: 2 MG, PRN (MAX 8 MG/DAILY)
     Route: 048
  25. NEXAVAR [Suspect]
     Active Substance: SORAFENIB
     Indication: HEPATOCELLULAR CARCINOMA
     Dosage: 200 MG, BID
     Route: 048
     Dates: start: 2015
  26. SOMNOR [Concomitant]
     Dosage: 10 MG, QD

REACTIONS (3)
  - Haemorrhoids [None]
  - Toxicity to various agents [Fatal]
  - Anal fissure [None]

NARRATIVE: CASE EVENT DATE: 20150217
